FAERS Safety Report 14919604 (Version 1)
Quarter: 2018Q2

REPORT INFORMATION
  Report Type: Spontaneous
  Country: US (occurrence: US)
  Receive Date: 20180521
  Receipt Date: 20180521
  Transmission Date: 20180711
  Serious: Yes (Other)
  Sender: FDA-Public Use
  Company Number: US-ASTELLAS-2018US022918

PATIENT
  Age: 87 Year
  Sex: Female

DRUGS (3)
  1. MYRBETRIQ [Suspect]
     Active Substance: MIRABEGRON
     Indication: PRODUCT USED FOR UNKNOWN INDICATION
     Route: 065
     Dates: start: 20180507, end: 20180509
  2. CARBIDOPA AND LEVODOPA [Interacting]
     Active Substance: CARBIDOPA\LEVODOPA
     Indication: PARKINSON^S DISEASE
     Dosage: UNK UNK, UNKNOWN FREQ.
     Route: 065
  3. LEVODOPA [Interacting]
     Active Substance: LEVODOPA
     Indication: PARKINSON^S DISEASE
     Dosage: UNK UNK, UNKNOWN FREQ.
     Route: 065

REACTIONS (4)
  - Blood pressure fluctuation [Unknown]
  - Drug interaction [Unknown]
  - Hypertension [Unknown]
  - Parkinsonian rest tremor [Unknown]

NARRATIVE: CASE EVENT DATE: 201805
